FAERS Safety Report 5445693-5 (Version None)
Quarter: 2007Q3

REPORT INFORMATION
  Report Type: 
  Country: None (occurrence: None)
  Receive Date: 20070904
  Receipt Date: 20070824
  Transmission Date: 20080115
  Serious: Yes (Disabling, Other)
  Sender: FDA-Public Use
  Company Number: 163-21880-07051499

PATIENT
  Age: 64 Year
  Sex: Male

DRUGS (11)
  1. REVLIMID [Suspect]
     Indication: MYELODYSPLASTIC SYNDROME
     Dosage: 5 MG, QD, ORAL; 10 MG, 1 IN 1 D, ORAL
     Route: 048
     Dates: start: 20060101, end: 20070401
  2. REVLIMID [Suspect]
     Indication: MYELODYSPLASTIC SYNDROME
     Dosage: 5 MG, QD, ORAL; 10 MG, 1 IN 1 D, ORAL
     Route: 048
     Dates: start: 20070409, end: 20070426
  3. EXJADE [Concomitant]
  4. TOPROL-XL [Concomitant]
  5. FOLIC ACID [Concomitant]
  6. LEXAPRO [Concomitant]
  7. PROCRIT [Concomitant]
  8. NEUPOGEN [Concomitant]
  9. MEGACE [Concomitant]
  10. KAOPECTATE              (KAOPECTATE) [Concomitant]
  11. IMODIUM [Concomitant]

REACTIONS (12)
  - ABDOMINAL DISCOMFORT [None]
  - CONFUSIONAL STATE [None]
  - DIARRHOEA [None]
  - GENERAL PHYSICAL HEALTH DETERIORATION [None]
  - HAEMOGLOBIN DECREASED [None]
  - LOBAR PNEUMONIA [None]
  - NIGHT SWEATS [None]
  - PLATELET COUNT DECREASED [None]
  - SKIN DISCOLOURATION [None]
  - SPLENOMEGALY [None]
  - UPPER RESPIRATORY TRACT INFECTION [None]
  - WEIGHT DECREASED [None]
